FAERS Safety Report 9768980 (Version 1)
Quarter: 2013Q4

REPORT INFORMATION
  Report Type: Spontaneous
  Country: CA (occurrence: None)
  Receive Date: 20131216
  Receipt Date: 20131216
  Transmission Date: 20140711
  Serious: Yes (Other)
  Sender: FDA-Public Use
  Company Number: SYM-2013-14012

PATIENT
  Age: 74 Year
  Sex: Male

DRUGS (1)
  1. CICLOPIROX OLAMINE [Suspect]
     Indication: NEOPLASM MALIGNANT
     Dosage: 40 MG/M2, 1 IN 1 D, ORAL
     Route: 048

REACTIONS (2)
  - Acute myeloid leukaemia [None]
  - Malignant neoplasm progression [None]
